FAERS Safety Report 4725855-2 (Version None)
Quarter: 2005Q3

REPORT INFORMATION
  Report Type: 
  Country: None (occurrence: None)
  Receive Date: 20050722
  Receipt Date: 20050722
  Transmission Date: 20060218
  Serious: No
  Sender: FDA-Public Use
  Company Number: None

PATIENT
  Sex: Male
  Weight: 58.514 kg

DRUGS (2)
  1. OXYCODONE SUSTAINED RELEASE 40 MG [Suspect]
     Indication: NEUROPATHY
     Dosage: 40 MG PO
     Route: 048
     Dates: start: 20050601
  2. OXYCODONE SUSTAINED RELEASE 40 MG [Suspect]
     Indication: PAIN
     Dosage: 40 MG PO
     Route: 048
     Dates: start: 20050601

REACTIONS (1)
  - PRURITUS [None]
